FAERS Safety Report 18423986 (Version 4)
Quarter: 2022Q1

REPORT INFORMATION
  Report Type: Other
  Country: US (occurrence: None)
  Receive Date: 20201025
  Receipt Date: 20220225
  Transmission Date: 20220423
  Serious: Yes (Other)
  Sender: FDA-Public Use
  Company Number: US-ROCHE-2700337

PATIENT
  Sex: Female
  Weight: 49.940 kg

DRUGS (7)
  1. OCREVUS [Suspect]
     Active Substance: OCRELIZUMAB
     Indication: Primary progressive multiple sclerosis
     Route: 042
     Dates: start: 2018, end: 201912
  2. OCREVUS [Suspect]
     Active Substance: OCRELIZUMAB
     Indication: Multiple sclerosis
     Dosage: 300 MG IN250 ML NSS IV EVERY 2 WEEKS FOR 2 TREATMENTS.
     Route: 042
  3. OCREVUS [Suspect]
     Active Substance: OCRELIZUMAB
     Dosage: 600 MG IN 500 ML NSS IV EVERY 6 MONTHS
     Route: 042
  4. BACLOFEN [Concomitant]
     Active Substance: BACLOFEN
     Indication: Muscle spasms
     Dosage: 2-3 TIMES PER DAY
     Route: 048
     Dates: start: 2005
  5. DIAZEPAM [Concomitant]
     Active Substance: DIAZEPAM
     Indication: Mood swings
     Route: 048
     Dates: start: 2020
  6. GRAMICIDIN\NEOMYCIN SULFATE\POLYMYXIN B SULFATE [Concomitant]
     Active Substance: GRAMICIDIN\NEOMYCIN SULFATE\POLYMYXIN B SULFATE
     Indication: Wound treatment
     Route: 061
  7. OXYBUTYNIN [Concomitant]
     Active Substance: OXYBUTYNIN
     Indication: Bladder spasm
     Route: 048
     Dates: start: 2015

REACTIONS (4)
  - Wound [Not Recovered/Not Resolved]
  - Cystitis [Recovered/Resolved]
  - Depression [Not Recovered/Not Resolved]
  - Asthenia [Not Recovered/Not Resolved]

NARRATIVE: CASE EVENT DATE: 20190101
